FAERS Safety Report 11293471 (Version 1)
Quarter: 2015Q3

REPORT INFORMATION
  Report Type: Spontaneous
  Country: JP (occurrence: JP)
  Receive Date: 20150722
  Receipt Date: 20150722
  Transmission Date: 20151125
  Serious: Yes (Death, Other)
  Sender: FDA-Public Use
  Company Number: PHHY2015JP081478

PATIENT
  Age: 78 Year
  Sex: Male
  Weight: 51 kg

DRUGS (8)
  1. PREDNISONE. [Suspect]
     Active Substance: PREDNISONE
     Indication: MANTLE CELL LYMPHOMA
     Dosage: 40 MG, UNK
     Route: 065
  2. PIPERACILLIN, TAZOBACTAM [Suspect]
     Active Substance: PIPERACILLIN SODIUM\TAZOBACTAM SODIUM
     Indication: AEROMONA INFECTION
  3. PIPERACILLIN, TAZOBACTAM [Suspect]
     Active Substance: PIPERACILLIN SODIUM\TAZOBACTAM SODIUM
     Indication: PYREXIA
     Route: 065
  4. DALTEPARIN [Concomitant]
     Active Substance: DALTEPARIN
     Indication: PYREXIA
     Route: 065
  5. VINCRISTINE [Suspect]
     Active Substance: VINCRISTINE
     Indication: MANTLE CELL LYMPHOMA
     Dosage: 1 MG, UNK
     Route: 065
  6. DALTEPARIN [Concomitant]
     Active Substance: DALTEPARIN
     Indication: AEROMONA INFECTION
  7. PIPERACILLIN, TAZOBACTAM [Suspect]
     Active Substance: PIPERACILLIN SODIUM\TAZOBACTAM SODIUM
     Indication: DISSEMINATED INTRAVASCULAR COAGULATION
  8. DALTEPARIN [Concomitant]
     Active Substance: DALTEPARIN
     Indication: DISSEMINATED INTRAVASCULAR COAGULATION

REACTIONS (5)
  - Aeromona infection [Not Recovered/Not Resolved]
  - Drug ineffective [Unknown]
  - Septic shock [Fatal]
  - Rash [Unknown]
  - Fasciitis [Unknown]
